FAERS Safety Report 14191599 (Version 2)
Quarter: 2021Q2

REPORT INFORMATION
  Report Type: Spontaneous
  Country: US (occurrence: US)
  Receive Date: 20171115
  Receipt Date: 20210611
  Transmission Date: 20210716
  Serious: Yes (Other)
  Sender: FDA-Public Use
  Company Number: US-BIOGEN-2015BI113508

PATIENT
  Age: 37 Year
  Sex: Female

DRUGS (1)
  1. TYSABRI [Suspect]
     Active Substance: NATALIZUMAB
     Indication: MULTIPLE SCLEROSIS
     Dosage: INFUSED FOR 1 HOUR
     Route: 042
     Dates: start: 20080103

REACTIONS (12)
  - Rash [Not Recovered/Not Resolved]
  - Malaise [Not Recovered/Not Resolved]
  - Memory impairment [Not Recovered/Not Resolved]
  - Nausea [Recovered/Resolved]
  - Blood glucose abnormal [Unknown]
  - Headache [Not Recovered/Not Resolved]
  - Multiple sclerosis [Recovered/Resolved]
  - Infusion related reaction [Unknown]
  - Reaction to excipient [Not Recovered/Not Resolved]
  - Hypertension [Unknown]
  - Diabetes mellitus [Not Recovered/Not Resolved]
  - Reaction to food additive [Not Recovered/Not Resolved]

NARRATIVE: CASE EVENT DATE: 201403
